FAERS Safety Report 8790633 (Version 1)
Quarter: 2012Q4

REPORT INFORMATION
  Report Type: Spontaneous
  Country: US (occurrence: None)
  Receive Date: 20120907
  Receipt Date: 20120907
  Transmission Date: 20130627
  Serious: Yes (Other)
  Sender: FDA-Public Use
  Company Number: SPI201200195

PATIENT
  Sex: Female

DRUGS (2)
  1. AMITIZA [Suspect]
     Indication: CONSTIPATION CHRONIC
     Route: 048
     Dates: start: 2009
  2. OMEPRAZOLE (OMEPRAZOLE) [Concomitant]

REACTIONS (1)
  - Grand mal convulsion [None]
